FAERS Safety Report 16681970 (Version 1)
Quarter: 2019Q3

REPORT INFORMATION
  Report Type: Spontaneous
  Country: IT (occurrence: IT)
  Receive Date: 20190808
  Receipt Date: 20190808
  Transmission Date: 20191004
  Serious: Yes (Other)
  Sender: FDA-Public Use
  Company Number: IT-SUN PHARMACEUTICAL INDUSTRIES LTD-2019RR-216809

PATIENT
  Age: 54 Year
  Sex: Female

DRUGS (1)
  1. OXALIPLATINO SUN [Suspect]
     Active Substance: OXALIPLATIN
     Indication: CHEMOTHERAPY
     Dosage: CYCLICAL
     Route: 042
     Dates: start: 20190717, end: 20190717

REACTIONS (4)
  - Loss of consciousness [Recovering/Resolving]
  - Pruritus generalised [Recovering/Resolving]
  - Lip pruritus [Recovering/Resolving]
  - Swelling [Recovering/Resolving]

NARRATIVE: CASE EVENT DATE: 20190717
